FAERS Safety Report 22398083 (Version 2)
Quarter: 2023Q2

REPORT INFORMATION
  Report Type: Spontaneous
  Country: CN (occurrence: None)
  Receive Date: 20230602
  Receipt Date: 20230613
  Transmission Date: 20230721
  Serious: Yes (Other)
  Sender: FDA-Public Use
  Company Number: 2023A124980

PATIENT
  Sex: Female

DRUGS (1)
  1. TAGRISSO [Suspect]
     Active Substance: OSIMERTINIB
     Dosage: UNKNOWN
     Route: 048

REACTIONS (7)
  - Metastatic neoplasm [Unknown]
  - Drug hypersensitivity [Unknown]
  - Counterfeit product administered [Unknown]
  - Suspected counterfeit product [Unknown]
  - Product colour issue [Unknown]
  - Product quality issue [Unknown]
  - Drug ineffective [Unknown]
